FAERS Safety Report 6944657-X (Version None)
Quarter: 2010Q3

REPORT INFORMATION
  Report Type: 
  Country: None (occurrence: None)
  Receive Date: 20100827
  Receipt Date: 20100824
  Transmission Date: 20110219
  Serious: Yes (Death)
  Sender: FDA-Public Use
  Company Number: PHHY2010CA28564

PATIENT
  Sex: Female

DRUGS (1)
  1. EXELON [Suspect]
     Indication: DEMENTIA
     Dosage: PATCH 10, 9.5 MG/24 HOURS
     Route: 062
     Dates: start: 20090331, end: 20100314

REACTIONS (1)
  - COMPLETED SUICIDE [None]
